FAERS Safety Report 18490310 (Version 2)
Quarter: 2020Q4

REPORT INFORMATION
  Report Type: Report from Study
  Country: US (occurrence: US)
  Receive Date: 20201111
  Receipt Date: 20201118
  Transmission Date: 20210114
  Serious: Yes (Hospitalization)
  Sender: FDA-Public Use
  Company Number: US-JNJFOC-20200803766

PATIENT
  Age: 33 Year
  Sex: Female
  Weight: 50 kg

DRUGS (7)
  1. SALOFALK                           /00747601/ [Concomitant]
     Active Substance: MESALAMINE
     Dates: start: 201809, end: 20191001
  2. MEZAVANT [Concomitant]
     Active Substance: MESALAMINE
     Dates: start: 201810, end: 20200227
  3. SIMPONI [Suspect]
     Active Substance: GOLIMUMAB
     Indication: COLITIS ULCERATIVE
     Route: 058
     Dates: start: 20190520, end: 20190902
  4. REMICADE [Concomitant]
     Active Substance: INFLIXIMAB
     Dates: start: 20200527
  5. CORTIMENT                          /00614601/ [Concomitant]
     Active Substance: BUDESONIDE
     Dates: start: 20191022, end: 20191211
  6. VEDOLIZUMAB [Concomitant]
     Active Substance: VEDOLIZUMAB
     Dates: start: 20191001, end: 20200423
  7. PREZOLON [Concomitant]
     Active Substance: PREDNISOLONE
     Dates: start: 20200501

REACTIONS (1)
  - Colitis ulcerative [Recovered/Resolved]

NARRATIVE: CASE EVENT DATE: 20200727
